FAERS Safety Report 10475444 (Version 1)
Quarter: 2014Q3

REPORT INFORMATION
  Report Type: Spontaneous
  Country: US (occurrence: None)
  Receive Date: 20140924
  Receipt Date: 20140924
  Transmission Date: 20150326
  Serious: Yes (Hospitalization)
  Sender: FDA-Public Use
  Company Number: None

PATIENT
  Sex: Male
  Weight: 90.72 kg

DRUGS (5)
  1. CENTURY 21 DETOXIFICATION [Concomitant]
     Active Substance: ACTIVATED CHARCOAL\ALCOHOL, X-RAY EXPOSED (1000 RAD)\ALLYLTHIOUREA\ALUMINUM\ANGUILLA ROSTRATA BLOOD SERUM\APIS MELLIFERA\ARSENIC\BACILLUS ANTHRACIS IMMUNOSERUM RABBIT\BARIUM CARBONATE\BERYLLIUM\BORON\BROMINE\CADMIUM\CAPSICUM\CARBO ANIMALIS\CERIUM\CESIUM\CHROMIUM\CLAVICEPS PURPUREA SCLEROTIUM\COBALT\
  2. METHPOTDEXATE [Suspect]
     Active Substance: METHOTREXATE
     Indication: RHEUMATOID ARTHRITIS
     Dosage: PILLS, TWICE DAILY, MOUTH
     Route: 048
  3. IRON [Concomitant]
     Active Substance: IRON
  4. PRENISONE [Concomitant]
  5. INFUSION MONTHLY [Concomitant]

REACTIONS (3)
  - Dyspnoea [None]
  - Apparent death [None]
  - Lung disorder [None]

NARRATIVE: CASE EVENT DATE: 2010
